FAERS Safety Report 21553802 (Version 1)
Quarter: 2022Q4

REPORT INFORMATION
  Report Type: Report from Study
  Country: US (occurrence: US)
  Receive Date: 20221104
  Receipt Date: 20221104
  Transmission Date: 20230113
  Serious: No
  Sender: FDA-Public Use
  Company Number: US-ABBVIE-4185287

PATIENT
  Sex: Male

DRUGS (2)
  1. IMBRUVICA [Suspect]
     Active Substance: IBRUTINIB
     Indication: White blood cell count increased
     Route: 048
     Dates: start: 20210910
  2. IMBRUVICA [Suspect]
     Active Substance: IBRUTINIB
     Indication: White blood cell count increased
     Route: 048

REACTIONS (1)
  - Drug tolerance [Unknown]
